FAERS Safety Report 10365636 (Version 2)
Quarter: 2015Q1

REPORT INFORMATION
  Report Type: Spontaneous
  Country: US (occurrence: None)
  Receive Date: 20140804
  Receipt Date: 20150202
  Transmission Date: 20150720
  Serious: Yes (Other)
  Sender: FDA-Public Use
  Company Number: JPI-P-022623

PATIENT
  Age: 38 Year
  Sex: Male
  Weight: 90.9 kg

DRUGS (8)
  1. XANAX [Concomitant]
     Active Substance: ALPRAZOLAM
  2. ALL OTHER THERAPEUTIC PRODUCTS (ALL OTHER THERAPEUTIC PRODUCTS) [Concomitant]
  3. FINASTERIDE (FINASTERIDE) [Concomitant]
     Active Substance: FINASTERIDE
  4. ANTIPSYCHOTICS (ANTIPSYCHOTICS) [Concomitant]
     Active Substance: UNSPECIFIED INGREDIENT
  5. XYREM [Suspect]
     Active Substance: SODIUM OXYBATE
     Indication: NARCOLEPSY
     Route: 048
     Dates: start: 200702, end: 2007
  6. XYREM [Suspect]
     Active Substance: SODIUM OXYBATE
     Indication: INSOMNIA
     Route: 048
     Dates: start: 200702, end: 2007
  7. LYRICA [Suspect]
     Active Substance: PREGABALIN
     Indication: PRODUCT USED FOR UNKNOWN INDICATION
  8. DEXEDRINE [Concomitant]
     Active Substance: DEXTROAMPHETAMINE SULFATE

REACTIONS (26)
  - Depressed mood [None]
  - Condition aggravated [None]
  - Social phobia [None]
  - Testis discomfort [None]
  - Musculoskeletal discomfort [None]
  - Weight decreased [None]
  - Pain in extremity [None]
  - Decreased appetite [None]
  - Depression [None]
  - Intentional product misuse [None]
  - Malaise [None]
  - Gait disturbance [None]
  - Intervertebral disc degeneration [None]
  - Back pain [None]
  - Wrong technique in drug usage process [None]
  - Fluid retention [None]
  - Intervertebral disc protrusion [None]
  - Muscle spasms [None]
  - Drug ineffective for unapproved indication [None]
  - Inguinal hernia [None]
  - Drug administration error [None]
  - Confusional state [None]
  - Joint swelling [None]
  - Insomnia [None]
  - Scoliosis [None]
  - Anxiety [None]

NARRATIVE: CASE EVENT DATE: 20120829
